FAERS Safety Report 14413875 (Version 1)
Quarter: 2018Q1

REPORT INFORMATION
  Report Type: Spontaneous
  Country: DE (occurrence: DE)
  Receive Date: 20180119
  Receipt Date: 20180119
  Transmission Date: 20180509
  Serious: Yes (Death, Hospitalization, Other)
  Sender: FDA-Public Use
  Company Number: DE-BAUSCH-BL-2018-001098

PATIENT
  Age: 74 Year
  Sex: Male
  Weight: 85 kg

DRUGS (18)
  1. PARACETAMOL [Concomitant]
     Active Substance: ACETAMINOPHEN
     Indication: BACK PAIN
     Route: 048
     Dates: start: 201608
  2. CLEXANE [Concomitant]
     Active Substance: ENOXAPARIN SODIUM
     Indication: THROMBOSIS PROPHYLAXIS
     Route: 058
     Dates: start: 20160830
  3. ZOMETA [Concomitant]
     Active Substance: ZOLEDRONIC ACID
     Indication: OSTEOLYSIS
     Dosage: EVERY 4 WEEK
     Route: 041
     Dates: start: 20160831
  4. BACTRIM [Concomitant]
     Active Substance: SULFAMETHOXAZOLE\TRIMETHOPRIM
     Indication: PRODUCT USED FOR UNKNOWN INDICATION
     Dosage: 411.4286 MILLIGRAM IN ONE WEEK
     Route: 065
     Dates: start: 20160818
  5. ACICLOVIR [Suspect]
     Active Substance: ACYCLOVIR
     Indication: INFECTION
     Route: 048
     Dates: start: 20160901
  6. REVLIMID [Suspect]
     Active Substance: LENALIDOMIDE
     Indication: PLASMA CELL MYELOMA
     Dosage: 315 MG MILLIGRAM(S) EVERY 28 DAY
     Route: 048
     Dates: start: 20160901, end: 20171005
  7. DOLANTIN [Suspect]
     Active Substance: MEPERIDINE
     Indication: PAIN
     Dosage: 11/OCT/2017 OR 12/OCT/2017
     Route: 042
     Dates: start: 201710
  8. VIGANTOLETTEN [Concomitant]
     Active Substance: CHOLECALCIFEROL
     Indication: OSTEOPOROSIS
     Route: 048
     Dates: start: 20160830
  9. DARATUMUMAB [Suspect]
     Active Substance: DARATUMUMAB
     Indication: PLASMA CELL MYELOMA
     Dosage: EVERY 4 WEEK
     Route: 041
     Dates: start: 20160901, end: 20161020
  10. DARATUMUMAB [Suspect]
     Active Substance: DARATUMUMAB
     Dosage: EVERY 4 WEEK
     Route: 041
     Dates: start: 20170817, end: 20170915
  11. PREGABALIN. [Suspect]
     Active Substance: PREGABALIN
     Indication: SPINAL COLUMN STENOSIS
     Route: 048
     Dates: start: 20170915
  12. TAMSULOSIN [Concomitant]
     Active Substance: TAMSULOSIN
     Indication: BENIGN PROSTATIC HYPERPLASIA
     Route: 048
     Dates: start: 2009
  13. LAXOFALK [Concomitant]
     Indication: CONSTIPATION
     Dosage: 2 SACHETS
     Route: 048
     Dates: start: 20160822
  14. CALCIUM BROMIDE [Suspect]
     Active Substance: CALCIUM BROMIDE
     Indication: OSTEOLYSIS
     Route: 048
     Dates: start: 20160909
  15. PALLADON [Suspect]
     Active Substance: HYDROMORPHONE
     Indication: BACK PAIN
     Route: 048
     Dates: start: 20160929
  16. METFORMIN [Concomitant]
     Active Substance: METFORMIN HYDROCHLORIDE
     Indication: TYPE 2 DIABETES MELLITUS
     Route: 048
     Dates: start: 2008
  17. CONTRIMOXAZOLE [Concomitant]
     Indication: INFECTION
     Route: 048
     Dates: start: 20160818
  18. DEXAMETHASONE. [Suspect]
     Active Substance: DEXAMETHASONE
     Indication: PLASMA CELL MYELOMA
     Dosage: EVERY WEEK
     Route: 041
     Dates: start: 20160901, end: 20171006

REACTIONS (13)
  - Chills [Unknown]
  - Sudden cardiac death [Fatal]
  - Rash [Unknown]
  - Urinary tract infection [Unknown]
  - Obstructive pancreatitis [Recovered/Resolved]
  - Oedema peripheral [Unknown]
  - Urinary retention [Unknown]
  - Tachycardia [Unknown]
  - Pneumonia [Unknown]
  - Spinal column stenosis [Recovered/Resolved]
  - Neutropenia [Unknown]
  - Hypertension [Unknown]
  - Hypotension [Unknown]

NARRATIVE: CASE EVENT DATE: 20160901
